FAERS Safety Report 6234678-7 (Version None)
Quarter: 2009Q2

REPORT INFORMATION
  Report Type: 
  Country: None (occurrence: None)
  Receive Date: 20090618
  Receipt Date: 20090608
  Transmission Date: 20091009
  Serious: Yes (Hospitalization)
  Sender: FDA-Public Use
  Company Number: US-BAXTER-2009BH009767

PATIENT
  Age: 85 Year
  Sex: Male
  Weight: 78 kg

DRUGS (14)
  1. GAMMAGARD LIQUID [Suspect]
     Indication: DEMENTIA ALZHEIMER'S TYPE
     Route: 042
     Dates: start: 20090527, end: 20090527
  2. GAMMAGARD LIQUID [Suspect]
     Indication: OFF LABEL USE
     Route: 042
     Dates: start: 20090527, end: 20090527
  3. GAMMAGARD LIQUID [Suspect]
     Route: 042
  4. GAMMAGARD LIQUID [Suspect]
     Route: 042
  5. ASPIRIN [Concomitant]
  6. DILTIAZEM [Concomitant]
  7. ARICEPT [Concomitant]
     Indication: AMNESIA
     Dates: start: 19990101
  8. CENTRUM SILVER [Concomitant]
     Dates: start: 20060301
  9. ASCORBIC ACID [Concomitant]
     Route: 048
     Dates: start: 20020601
  10. VITAMIN E [Concomitant]
     Indication: VITAMIN SUPPLEMENTATION
     Route: 048
     Dates: start: 20070301
  11. COZAAR [Concomitant]
     Indication: HYPERTENSION
     Route: 048
     Dates: start: 20080301
  12. ARICEPT [Concomitant]
     Route: 048
     Dates: start: 20040101
  13. ULTRAM [Concomitant]
     Indication: PAIN IN EXTREMITY
     Route: 048
     Dates: start: 20090101
  14. FLONASE [Concomitant]
     Indication: RHINORRHOEA
     Route: 045
     Dates: start: 20090501

REACTIONS (1)
  - BLINDNESS [None]
